FAERS Safety Report 4311233-7 (Version None)
Quarter: 2004Q1

REPORT INFORMATION
  Report Type: 
  Country: None (occurrence: None)
  Receive Date: 20040302
  Receipt Date: 20040216
  Transmission Date: 20041129
  Serious: Yes (Hospitalization)
  Sender: FDA-Public Use
  Company Number: 2003IM000581

PATIENT
  Age: 75 Year
  Sex: Male
  Weight: 81.1939 kg

DRUGS (7)
  1. ACTIMMUNE [Suspect]
     Indication: INTERSTITIAL LUNG DISEASE
     Dosage: 200 UG;TIW;SUBCUTANEOUS
     Route: 058
     Dates: start: 20021001, end: 20030526
  2. MULTI-VITAMINS [Concomitant]
  3. CALCIUM [Concomitant]
  4. REMERON [Concomitant]
  5. BIAXIN [Concomitant]
  6. BACTRIM [Concomitant]
  7. CITRUCEL [Concomitant]

REACTIONS (8)
  - ASPIRATION [None]
  - ASTHENIA [None]
  - GASTROOESOPHAGEAL REFLUX DISEASE [None]
  - MENTAL STATUS CHANGES [None]
  - OESOPHAGEAL DISORDER [None]
  - PNEUMONIA [None]
  - SELF-MEDICATION [None]
  - SEPSIS [None]
